FAERS Safety Report 6088129-6 (Version None)
Quarter: 2009Q1

REPORT INFORMATION
  Report Type: 
  Country: None (occurrence: None)
  Receive Date: 20090224
  Receipt Date: 20090216
  Transmission Date: 20090719
  Serious: Yes (Life-Threatening)
  Sender: FDA-Public Use
  Company Number: CA-RANBAXY-2009RR-21836

PATIENT
  Age: 13 Year
  Sex: Female

DRUGS (3)
  1. ACETAMINOPHEN [Suspect]
     Dosage: 650 MG, UNK
     Route: 048
  2. ACETAMINOPHEN [Suspect]
     Dosage: 325 MG, UNK
     Route: 048
  3. TYLENOL [Suspect]
     Dosage: 325 MG, UNK
     Route: 048

REACTIONS (1)
  - ANAPHYLACTIC REACTION [None]
